FAERS Safety Report 19708117 (Version 1)
Quarter: 2021Q3

REPORT INFORMATION
  Report Type: Spontaneous
  Country: US (occurrence: US)
  Receive Date: 20210817
  Receipt Date: 20210817
  Transmission Date: 20211014
  Serious: Yes (Disabling)
  Sender: FDA-Public Use
  Company Number: None

PATIENT
  Age: 48 Year
  Sex: Female
  Weight: 67.5 kg

DRUGS (1)
  1. TAMOXIFEN 20 MG TABLET [Suspect]
     Active Substance: TAMOXIFEN
     Indication: BREAST CANCER STAGE I
     Dosage: ?          QUANTITY:1 TABLET(S);?
     Route: 048
     Dates: start: 20210805, end: 20210817

REACTIONS (1)
  - Product formulation issue [None]

NARRATIVE: CASE EVENT DATE: 20210815
